FAERS Safety Report 4370441-X (Version None)
Quarter: 2004Q2

REPORT INFORMATION
  Report Type: 
  Country: None (occurrence: None)
  Receive Date: 20040603
  Receipt Date: 20040209
  Transmission Date: 20050107
  Serious: Yes (Other)
  Sender: FDA-Public Use
  Company Number: US-BRISTOL-MYERS SQUIBB COMPANY-12503298

PATIENT
  Age: 15 Year
  Sex: Male

DRUGS (4)
  1. ABILIFY [Suspect]
     Indication: BIPOLAR DISORDER
     Route: 048
     Dates: start: 20030915, end: 20031222
  2. TRAZODONE HCL [Concomitant]
     Dosage: 75-100 MG HS
  3. STRATTERA [Concomitant]
  4. RISPERDAL [Concomitant]
     Dates: end: 20030929

REACTIONS (1)
  - CONVULSION [None]
